FAERS Safety Report 23255537 (Version 1)
Quarter: 2023Q4

REPORT INFORMATION
  Report Type: Spontaneous
  Country: CA (occurrence: CA)
  Receive Date: 20231203
  Receipt Date: 20231203
  Transmission Date: 20240110
  Serious: Yes (Other)
  Sender: FDA-Public Use
  Company Number: CA-JNJFOC-20231181298

PATIENT
  Age: 47 Year
  Sex: Female

DRUGS (15)
  1. SIMPONI [Suspect]
     Active Substance: GOLIMUMAB
     Indication: Product used for unknown indication
     Route: 058
  2. ACTEMRA [Suspect]
     Active Substance: TOCILIZUMAB
     Indication: Product used for unknown indication
     Route: 065
  3. CEPHALEXIN [Suspect]
     Active Substance: CEPHALEXIN
     Indication: Product used for unknown indication
     Route: 065
  4. LEFLUNOMIDE [Suspect]
     Active Substance: LEFLUNOMIDE
     Indication: Product used for unknown indication
     Route: 065
  5. OLUMIANT [Suspect]
     Active Substance: BARICITINIB
     Indication: Product used for unknown indication
     Route: 065
  6. HYDROXYCHLOROQUINE DIPHOSPHATE [Suspect]
     Active Substance: HYDROXYCHLOROQUINE DIPHOSPHATE
     Indication: Product used for unknown indication
     Route: 065
  7. CIPROFLOXACIN [Concomitant]
     Active Substance: CIPROFLOXACIN
  8. METHOTREXATE [Concomitant]
     Active Substance: METHOTREXATE
  9. NAPROXEN [Concomitant]
     Active Substance: NAPROXEN
  10. NOROXIN [Concomitant]
     Active Substance: NORFLOXACIN
  11. ORENCIA [Concomitant]
     Active Substance: ABATACEPT
  12. AZITHROMYCIN ANHYDROUS [Concomitant]
     Active Substance: AZITHROMYCIN ANHYDROUS
  13. PYRITINOL HYDROCHLORIDE [Concomitant]
     Active Substance: PYRITINOL HYDROCHLORIDE
  14. SULFAMETHOXAZOLE\TRIMETHOPRIM [Concomitant]
     Active Substance: SULFAMETHOXAZOLE\TRIMETHOPRIM
  15. TINZAPARIN [Concomitant]
     Active Substance: TINZAPARIN
     Route: 065

REACTIONS (8)
  - Anaphylactic reaction [Unknown]
  - Drug hypersensitivity [Unknown]
  - Blister [Unknown]
  - Rash [Unknown]
  - Gastrointestinal disorder [Unknown]
  - Headache [Unknown]
  - Pharyngeal swelling [Unknown]
  - Throat tightness [Unknown]
